FAERS Safety Report 5004744-2 (Version None)
Quarter: 2006Q1

REPORT INFORMATION
  Report Type: 
  Country: None (occurrence: None)
  Receive Date: 20060321
  Receipt Date: 20051121
  Transmission Date: 20060701
  Serious: No
  Sender: FDA-Public Use
  Company Number: YPA20050602

PATIENT
  Age: 71 Year
  Sex: Female

DRUGS (2)
  1. VESICARE [Suspect]
     Indication: INCONTINENCE
     Dosage: 5 MG, UID/QD, ORAL
     Route: 048
     Dates: start: 20051117
  2. OTHER MEDICATIONS [Concomitant]

REACTIONS (4)
  - DRY MOUTH [None]
  - GLOSSODYNIA [None]
  - TONGUE DISORDER [None]
  - TONGUE DRY [None]
